FAERS Safety Report 24554216 (Version 2)
Quarter: 2024Q4

REPORT INFORMATION
  Report Type: Spontaneous
  Country: US (occurrence: US)
  Receive Date: 20241028
  Receipt Date: 20241129
  Transmission Date: 20250114
  Serious: Yes (Other)
  Sender: ORGANON
  Company Number: US-ORGANON-O2410USA002164

PATIENT
  Sex: Female

DRUGS (1)
  1. NEXPLANON [Suspect]
     Active Substance: ETONOGESTREL
     Dosage: 1 IMPLANT (LEFT UPPER ARM) (PATIENT^S NON DOMINANT ARM)
     Route: 059
     Dates: start: 20240919

REACTIONS (3)
  - Device dislocation [Not Recovered/Not Resolved]
  - Device placement issue [Not Recovered/Not Resolved]
  - No adverse event [Unknown]

NARRATIVE: CASE EVENT DATE: 20240101
